FAERS Safety Report 8544204-5 (Version None)
Quarter: 2012Q3

REPORT INFORMATION
  Report Type: 
  Country: None (occurrence: None)
  Receive Date: 20120727
  Receipt Date: 20120725
  Transmission Date: 20120928
  Serious: Yes (Hospitalization, Other)
  Sender: FDA-Public Use
  Company Number: PHHY2012NO053575

PATIENT
  Sex: Male

DRUGS (3)
  1. OLANZAPINE [Concomitant]
     Dosage: 30 MG, DAILY
  2. CLOZAPINE [Suspect]
     Dosage: 900 MG, ONCE DAILY
  3. CLOZAPINE [Suspect]
     Dosage: 700 MG, DAILY

REACTIONS (2)
  - PSYCHOTIC DISORDER [None]
  - TOXICITY TO VARIOUS AGENTS [None]
